FAERS Safety Report 13902843 (Version 1)
Quarter: 2017Q3

REPORT INFORMATION
  Report Type: Spontaneous
  Country: JP (occurrence: JP)
  Receive Date: 20170824
  Receipt Date: 20170824
  Transmission Date: 20171127
  Serious: Yes (Other)
  Sender: FDA-Public Use
  Company Number: JP-CONCORDIA PHARMACEUTICALS INC.-GSH201708-004784

PATIENT
  Age: 3 Year
  Sex: Female

DRUGS (5)
  1. PREDNISOLONE. [Suspect]
     Active Substance: PREDNISOLONE
     Indication: HENOCH-SCHONLEIN PURPURA NEPHRITIS
  2. WARFARIN [Suspect]
     Active Substance: WARFARIN
     Indication: HENOCH-SCHONLEIN PURPURA NEPHRITIS
  3. MIZORIBINE [Suspect]
     Active Substance: MIZORIBINE
     Indication: HENOCH-SCHONLEIN PURPURA NEPHRITIS
  4. METHYLPREDNISOLONE. [Suspect]
     Active Substance: METHYLPREDNISOLONE
     Indication: HENOCH-SCHONLEIN PURPURA NEPHRITIS
  5. DIPYRIDAMOLE. [Suspect]
     Active Substance: DIPYRIDAMOLE
     Indication: HENOCH-SCHONLEIN PURPURA NEPHRITIS

REACTIONS (4)
  - Blister [Recovered/Resolved]
  - Skin abrasion [Recovered/Resolved]
  - Toxic epidermal necrolysis [Recovered/Resolved]
  - Erythema [Recovered/Resolved]
